FAERS Safety Report 19144229 (Version 1)
Quarter: 2021Q2

REPORT INFORMATION
  Report Type: Spontaneous
  Country: US (occurrence: US)
  Receive Date: 20210416
  Receipt Date: 20210416
  Transmission Date: 20210717
  Serious: No
  Sender: FDA-Public Use
  Company Number: US-GLAXOSMITHKLINE-US2021082479

PATIENT
  Age: 54 Year
  Sex: Female

DRUGS (1)
  1. FLONASE ALLERGY RELIEF [Suspect]
     Active Substance: FLUTICASONE PROPIONATE
     Indication: HYPERSENSITIVITY
     Dosage: UNK
     Dates: start: 20210407, end: 20210407

REACTIONS (3)
  - Laryngeal pain [Unknown]
  - Expired product administered [Unknown]
  - Burning sensation [Unknown]

NARRATIVE: CASE EVENT DATE: 20210407
